FAERS Safety Report 24663630 (Version 1)
Quarter: 2024Q4

REPORT INFORMATION
  Report Type: Spontaneous
  Country: FR (occurrence: FR)
  Receive Date: 20241126
  Receipt Date: 20241126
  Transmission Date: 20250115
  Serious: Yes (Life-Threatening, Hospitalization)
  Sender: SANDOZ
  Company Number: None

PATIENT
  Age: 76 Year
  Sex: Male
  Weight: 80 kg

DRUGS (21)
  1. BROMAZEPAM [Suspect]
     Active Substance: BROMAZEPAM
     Indication: Mixed anxiety and depressive disorder
     Dosage: 3 MG, QD
     Route: 048
  2. BROMAZEPAM [Suspect]
     Active Substance: BROMAZEPAM
     Indication: Anxiety
  3. CLOZAPINE [Suspect]
     Active Substance: CLOZAPINE
     Indication: Product used for unknown indication
     Dosage: 12.5 MG, QD
     Route: 048
  4. FESOTERODINE [Suspect]
     Active Substance: FESOTERODINE
     Indication: Benign prostatic hyperplasia
     Dosage: 8 MG, QD, START DATE: 07-OCT-2024
     Route: 048
  5. MELATONIN [Suspect]
     Active Substance: MELATONIN
     Dosage: 2 MG, QD (REDUCTION OF MELATONINE TO 2MG/DAY), START DATE:08-OCT-2024
     Route: 048
  6. MELATONIN [Suspect]
     Active Substance: MELATONIN
     Dosage: 8 MG, QD (MELATONIN REDUCED TO 8MG/DAY),START DATE:OCT-2024
     Route: 048
  7. MELATONIN [Suspect]
     Active Substance: MELATONIN
     Indication: Sleep disorder
     Dosage: 9 MG, QD
     Route: 048
  8. BENSERAZIDE HYDROCHLORIDE\LEVODOPA [Suspect]
     Active Substance: BENSERAZIDE HYDROCHLORIDE\LEVODOPA
     Dosage: 125 MG, QD (DISCONTINUED), START DATE:OCT-2024
     Route: 048
  9. BENSERAZIDE HYDROCHLORIDE\LEVODOPA [Suspect]
     Active Substance: BENSERAZIDE HYDROCHLORIDE\LEVODOPA
     Dosage: 125 MG, QD (RESUMPTION), START DATE:06-OCT-2024
     Route: 048
  10. BENSERAZIDE HYDROCHLORIDE\LEVODOPA [Suspect]
     Active Substance: BENSERAZIDE HYDROCHLORIDE\LEVODOPA
     Indication: Parkinson^s disease
     Dosage: 125 MG, QD, START DATE:03-OCT-2024
     Route: 048
  11. OXAZEPAM [Suspect]
     Active Substance: OXAZEPAM
     Indication: Anxiety
     Dosage: 10 MG, QD, START DATE: 01-SEP-2024
     Route: 048
  12. ROSUVASTATIN [Suspect]
     Active Substance: ROSUVASTATIN
     Dosage: 910 MG, QD (DISCONTINUED), START DATE:OCT-2024
     Route: 048
  13. ROSUVASTATIN [Suspect]
     Active Substance: ROSUVASTATIN
     Dosage: 910 MG, QD (RESUMPTION), START DATE:06-OCT-2024
     Route: 048
  14. ROSUVASTATIN [Suspect]
     Active Substance: ROSUVASTATIN
     Indication: Dyslipidaemia
     Dosage: 910 MG, QD, START DATE:03-OCT-2024
     Route: 048
  15. SERTRALINE HYDROCHLORIDE [Suspect]
     Active Substance: SERTRALINE HYDROCHLORIDE
     Dosage: 100 MG, QD (DISCONTINUED), START DATE:OCT-2024
     Route: 048
  16. SERTRALINE HYDROCHLORIDE [Suspect]
     Active Substance: SERTRALINE HYDROCHLORIDE
     Dosage: 100 MG, QD (RESUMPTION), START DATE:06-OCT-2024
     Route: 048
  17. SERTRALINE HYDROCHLORIDE [Suspect]
     Active Substance: SERTRALINE HYDROCHLORIDE
     Indication: Depression
     Dosage: 100 MG, QD, START DATE:03-OCT-2024
     Route: 048
  18. SINEMET [Suspect]
     Active Substance: CARBIDOPA\LEVODOPA
     Indication: Parkinson^s disease
     Dosage: 9 DF, QD (TABLET SCORED)
     Route: 048
  19. DUPHALAC [Concomitant]
     Active Substance: LACTULOSE
     Indication: Product used for unknown indication
     Dosage: UNK
     Route: 065
  20. LEVOTHYROXINE SODIUM [Concomitant]
     Active Substance: LEVOTHYROXINE SODIUM
     Indication: Product used for unknown indication
     Dosage: UNK
     Route: 065
  21. SILODOSIN [Concomitant]
     Active Substance: SILODOSIN
     Indication: Product used for unknown indication
     Dosage: UNK
     Route: 065
     Dates: start: 20241008

REACTIONS (8)
  - Fall [Recovered/Resolved with Sequelae]
  - Traumatic haemothorax [Recovered/Resolved with Sequelae]
  - Rib fracture [Recovering/Resolving]
  - Splenic injury [Unknown]
  - Pleural effusion [Unknown]
  - Diaphragmatic rupture [Unknown]
  - Diaphragmatic hernia [Unknown]
  - Delirium [Unknown]

NARRATIVE: CASE EVENT DATE: 20240920
